FAERS Safety Report 25831022 (Version 6)
Quarter: 2025Q4

REPORT INFORMATION
  Report Type: Report from Study
  Country: EU (occurrence: EU)
  Receive Date: 20250922
  Receipt Date: 20251201
  Transmission Date: 20260117
  Serious: Yes (Death, Hospitalization)
  Sender: ALEXION PHARMACEUTICALS
  Company Number: EU-ASTRAZENECA-202509GLO011690DE

PATIENT
  Age: 65 Year
  Sex: Female
  Weight: 86 kg

DRUGS (13)
  1. DURVALUMAB [Suspect]
     Active Substance: DURVALUMAB
     Indication: Hepatocellular carcinoma
     Dosage: 1500 MILLIGRAM
     Dates: start: 20250515, end: 20250814
  2. GEMCITABINE [Suspect]
     Active Substance: GEMCITABINE
     Indication: Hepatocellular carcinoma
     Dosage: 1460 MILLIGRAM
     Route: 065
     Dates: start: 20250515, end: 20250515
  3. GEMCITABINE [Suspect]
     Active Substance: GEMCITABINE
     Dosage: 1940 MILLIGRAM
     Route: 065
     Dates: start: 20250522, end: 20250522
  4. GEMCITABINE [Suspect]
     Active Substance: GEMCITABINE
     Dosage: 1440 MILLIGRAM
     Route: 065
     Dates: start: 20250612, end: 20250618
  5. GEMCITABINE [Suspect]
     Active Substance: GEMCITABINE
     Dosage: 1460 MILLIGRAM
     Route: 065
     Dates: start: 20250702, end: 20250702
  6. GEMCITABINE [Suspect]
     Active Substance: GEMCITABINE
     Dosage: 1440 MILLIGRAM
     Route: 065
     Dates: start: 20250717, end: 20250717
  7. GEMCITABINE [Suspect]
     Active Substance: GEMCITABINE
     Dosage: 1400 MILLIGRAM
     Route: 065
     Dates: start: 20250814, end: 20250828
  8. CISPLATIN [Suspect]
     Active Substance: CISPLATIN
     Indication: Hepatocellular carcinoma
     Dosage: 36 MILLIGRAM
     Route: 065
     Dates: start: 20250515, end: 20250515
  9. CISPLATIN [Suspect]
     Active Substance: CISPLATIN
     Dosage: 48 MILLIGRAM
     Route: 065
     Dates: start: 20250522, end: 20250522
  10. CISPLATIN [Suspect]
     Active Substance: CISPLATIN
     Dosage: 36 MILLIGRAM
     Route: 065
     Dates: start: 20250612, end: 20250618
  11. CISPLATIN [Suspect]
     Active Substance: CISPLATIN
     Dosage: 36.5 MILLIGRAM
     Route: 065
     Dates: start: 20250702, end: 20250702
  12. OXALIPLATIN [Suspect]
     Active Substance: OXALIPLATIN
     Indication: Hepatocellular carcinoma
     Dosage: 145 MILLIGRAM
     Route: 065
     Dates: start: 20250717, end: 20250717
  13. OXALIPLATIN [Suspect]
     Active Substance: OXALIPLATIN
     Dosage: 140 MILLIGRAM
     Route: 065
     Dates: start: 20250814, end: 20250828

REACTIONS (2)
  - Thrombotic microangiopathy [Fatal]
  - Acute kidney injury [Fatal]

NARRATIVE: CASE EVENT DATE: 20250912
